FAERS Safety Report 16959279 (Version 1)
Quarter: 2019Q4

REPORT INFORMATION
  Report Type: Report from Study
  Country: US (occurrence: US)
  Receive Date: 20191024
  Receipt Date: 20191024
  Transmission Date: 20200122
  Serious: Yes (Other)
  Sender: FDA-Public Use
  Company Number: US-BEH-2019099287

PATIENT
  Age: 64 Year
  Sex: Female

DRUGS (3)
  1. HIZENTRA [Suspect]
     Active Substance: HUMAN IMMUNOGLOBULIN G
     Dosage: UNK
     Route: 065
     Dates: start: 20181115
  2. HIZENTRA [Suspect]
     Active Substance: HUMAN IMMUNOGLOBULIN G
     Indication: CHRONIC INFLAMMATORY DEMYELINATING POLYRADICULONEUROPATHY
     Dosage: 20 G, QW
     Route: 058
     Dates: start: 20181115, end: 2019
  3. HIZENTRA [Suspect]
     Active Substance: HUMAN IMMUNOGLOBULIN G
     Dosage: 31 G, QW
     Route: 058
     Dates: start: 2019

REACTIONS (13)
  - Arthralgia [Not Recovered/Not Resolved]
  - Burning sensation [Unknown]
  - Ill-defined disorder [Unknown]
  - Joint swelling [Not Recovered/Not Resolved]
  - Burning sensation [Unknown]
  - Pain [Recovering/Resolving]
  - Arthritis [Unknown]
  - Fatigue [Not Recovered/Not Resolved]
  - Knee arthroplasty [Recovering/Resolving]
  - Discomfort [Unknown]
  - Asthenia [Unknown]
  - Vision blurred [Unknown]
  - Pain in extremity [Unknown]

NARRATIVE: CASE EVENT DATE: 20181115
